FAERS Safety Report 11637923 (Version 5)
Quarter: 2017Q2

REPORT INFORMATION
  Report Type: Spontaneous
  Country: MX (occurrence: MX)
  Receive Date: 20151016
  Receipt Date: 20170502
  Transmission Date: 20170829
  Serious: No
  Sender: FDA-Public Use
  Company Number: MX-ABBVIE-15P-107-1482216-00

PATIENT
  Age: 70 Year
  Sex: Female
  Weight: 52.7 kg

DRUGS (5)
  1. RIVOTRIL [Concomitant]
     Active Substance: CLONAZEPAM
     Indication: INSOMNIA
     Dosage: 1/4 OF THE DOSE AT NIGHT
     Route: 048
     Dates: start: 20150914
  2. VIEKIRA PAK [Suspect]
     Active Substance: DASABUVIR\OMBITASVIR\PARITAPREVIR\RITONAVIR
     Indication: HEPATIC FIBROSIS
     Dosage: DEC REASED
     Route: 048
     Dates: start: 20151126, end: 20160229
  3. VIEKIRA PAK [Suspect]
     Active Substance: DASABUVIR\OMBITASVIR\PARITAPREVIR\RITONAVIR
     Indication: CHRONIC HEPATITIS C
     Route: 048
     Dates: start: 20150915, end: 20151126
  4. VIRAZIDE [Suspect]
     Active Substance: RIBAVIRIN
     Dosage: DOSAGE DECREASED
     Route: 048
  5. VIRAZIDE [Suspect]
     Active Substance: RIBAVIRIN
     Indication: HEPATITIS C
     Route: 048
     Dates: start: 20150915

REACTIONS (15)
  - Apathy [Recovered/Resolved]
  - Viral upper respiratory tract infection [Recovered/Resolved]
  - Depressed mood [Recovered/Resolved]
  - Dizziness [Recovered/Resolved]
  - Headache [Recovered/Resolved]
  - Nausea [Recovered/Resolved]
  - Fatigue [Recovered/Resolved]
  - Somnolence [Recovered/Resolved]
  - Abulia [Recovered/Resolved]
  - Depression [Recovered/Resolved]
  - Insomnia [Recovered/Resolved]
  - Haemoglobin decreased [Recovering/Resolving]
  - Irritability [Recovered/Resolved]
  - Pruritus [Recovered/Resolved]
  - Crying [Recovered/Resolved]

NARRATIVE: CASE EVENT DATE: 20150922
